FAERS Safety Report 8609749-8 (Version None)
Quarter: 2012Q3

REPORT INFORMATION
  Report Type: 
  Country: None (occurrence: None)
  Receive Date: 20120821
  Receipt Date: 20120814
  Transmission Date: 20120928
  Serious: Yes (Other)
  Sender: FDA-Public Use
  Company Number: JP-CELGENEUS-087-21880-11063724

PATIENT
  Sex: Female

DRUGS (12)
  1. REVLIMID [Suspect]
     Dosage: 25 MILLIGRAM
     Route: 048
     Dates: start: 20101115, end: 20101117
  2. REVLIMID [Suspect]
     Dosage: 15 MILLIGRAM
     Route: 048
     Dates: start: 20110126, end: 20110215
  3. DEXAMETHASONE ACETATE [Suspect]
     Indication: MULTIPLE MYELOMA
     Route: 048
     Dates: start: 20101018, end: 20101106
  4. REVLIMID [Suspect]
     Dosage: 15 MILLIGRAM
     Route: 048
     Dates: start: 20110406, end: 20110426
  5. PROMAC [Concomitant]
     Indication: PROPHYLAXIS
     Route: 048
  6. ITRACONAZOLE [Concomitant]
     Indication: PROPHYLAXIS
     Dosage: 20 CC
     Route: 048
  7. SULFAMETHOXAZOLE AND TRIMETHOPRIM [Concomitant]
     Indication: PROPHYLAXIS
     Route: 048
  8. REVLIMID [Suspect]
     Indication: MULTIPLE MYELOMA
     Dosage: 25 MILLIGRAM
     Route: 048
     Dates: start: 20101018, end: 20101107
  9. REVLIMID [Suspect]
     Dosage: 15 MILLIGRAM
     Route: 048
     Dates: start: 20101229, end: 20110118
  10. BIO-THREE [Concomitant]
     Indication: PROPHYLAXIS
     Route: 048
  11. ALLOPURINOL [Concomitant]
     Indication: PROPHYLAXIS
     Dosage: 1 TABLET
     Route: 048
  12. REVLIMID [Suspect]
     Dosage: 15 MILLIGRAM
     Route: 048
     Dates: start: 20101201, end: 20101221

REACTIONS (4)
  - WHITE BLOOD CELL COUNT DECREASED [None]
  - MANIA [None]
  - NEUTROPHIL COUNT DECREASED [None]
  - HEPATIC FUNCTION ABNORMAL [None]
